FAERS Safety Report 17836895 (Version 1)
Quarter: 2020Q2

REPORT INFORMATION
  Report Type: Spontaneous
  Country: US (occurrence: US)
  Receive Date: 20200529
  Receipt Date: 20200529
  Transmission Date: 20200714
  Serious: Yes (Hospitalization, Other)
  Sender: FDA-Public Use
  Company Number: US-AUROBINDO-AUR-APL-2020-025914

PATIENT
  Age: 47 Year
  Sex: Female

DRUGS (4)
  1. VANCOMYCIN INJECTION [Suspect]
     Active Substance: VANCOMYCIN
     Indication: PERITONITIS
     Dosage: UNK
     Route: 033
  2. CEPHALEXIN. [Suspect]
     Active Substance: CEPHALEXIN
     Indication: ERYTHEMA
     Dosage: UNK
     Route: 048
  3. AMOXICILLIN. [Suspect]
     Active Substance: AMOXICILLIN
     Indication: CATHETER SITE INFECTION
     Dosage: UNK
     Route: 048
  4. CEPHALEXIN. [Suspect]
     Active Substance: CEPHALEXIN
     Indication: PRURITUS

REACTIONS (3)
  - Pruritus [Recovered/Resolved]
  - Red man syndrome [Recovered/Resolved]
  - Erythema [Recovered/Resolved]
